FAERS Safety Report 9023881 (Version 1)
Quarter: 2013Q1

REPORT INFORMATION
  Report Type: Spontaneous
  Country: US (occurrence: US)
  Receive Date: 20130121
  Receipt Date: 20130121
  Transmission Date: 20140127
  Serious: Yes (Hospitalization)
  Sender: FDA-Public Use
  Company Number: US-ELI_LILLY_AND_COMPANY-US201301003189

PATIENT
  Age: 55 None
  Sex: Female

DRUGS (7)
  1. FORTEO [Suspect]
     Indication: OSTEOPOROSIS
     Dosage: 20 UG, QD
     Dates: start: 201103
  2. ACIPHEX [Concomitant]
     Indication: GASTROOESOPHAGEAL REFLUX DISEASE
     Dosage: 20 MG, UNK
  3. ADVAIR [Concomitant]
     Dosage: 100/50
  4. IBUPROFEN [Concomitant]
     Dosage: 800 MG, UNK
  5. CALCIUM + VITAMIN D [Concomitant]
  6. VITAMIN D [Concomitant]
     Dosage: 1000 IU, UNK
  7. HYDROCODONE [Concomitant]
     Dosage: 10

REACTIONS (14)
  - Transient ischaemic attack [Unknown]
  - Tendon rupture [Unknown]
  - Tendonitis [Unknown]
  - Nasopharyngitis [Unknown]
  - Influenza [Unknown]
  - Pain [Unknown]
  - Pain in extremity [Unknown]
  - Cyst [Unknown]
  - Tendonitis [Unknown]
  - Neck pain [Unknown]
  - Muscle injury [Unknown]
  - Hypertension [Unknown]
  - Therapy change [Unknown]
  - Dyspepsia [Unknown]
